FAERS Safety Report 10177061 (Version 2)
Quarter: 2014Q2

REPORT INFORMATION
  Report Type: Spontaneous
  Country: DE (occurrence: DE)
  Receive Date: 20140516
  Receipt Date: 20140516
  Transmission Date: 20141212
  Serious: Yes (Life-Threatening, Hospitalization)
  Sender: FDA-Public Use
  Company Number: DE-TEVA-478888GER

PATIENT
  Age: 66 Year
  Sex: Female
  Weight: 65 kg

DRUGS (4)
  1. OXALIPLATIN-GRY 200 MG [Suspect]
     Indication: RECTAL CANCER
     Route: 042
     Dates: start: 20140422, end: 20140422
  2. FOLINSAEURE [Concomitant]
     Indication: RECTAL CANCER
     Route: 042
     Dates: start: 20140422, end: 20140422
  3. 5-FU [Concomitant]
     Indication: RECTAL CANCER
     Route: 042
  4. 5-FU [Concomitant]
     Route: 042

REACTIONS (8)
  - Paraesthesia [Recovered/Resolved]
  - Pruritus [Recovered/Resolved]
  - Chest discomfort [Recovered/Resolved]
  - Throat tightness [Recovered/Resolved]
  - Hyperventilation [Recovered/Resolved]
  - Blood pressure systolic decreased [Recovered/Resolved]
  - Nausea [Recovered/Resolved]
  - Hypersensitivity [None]
